FAERS Safety Report 4340026-X (Version None)
Quarter: 2004Q2

REPORT INFORMATION
  Report Type: 
  Country: None (occurrence: None)
  Receive Date: 20040412
  Receipt Date: 20040402
  Transmission Date: 20050107
  Serious: No
  Sender: FDA-Public Use
  Company Number: 04P-087-0255792-00

PATIENT
  Age: 58 Year
  Sex: Female

DRUGS (2)
  1. OMNICEF [Suspect]
     Indication: PHARYNGITIS
     Dosage: 300 MG, 1 IN 1 D, PER ORAL
     Route: 048
  2. CLOTRIMAZOLE [Concomitant]

REACTIONS (2)
  - STEVENS-JOHNSON SYNDROME [None]
  - VISUAL ACUITY REDUCED [None]
